FAERS Safety Report 21974309 (Version 2)
Quarter: 2023Q1

REPORT INFORMATION
  Report Type: Report from Study
  Country: US (occurrence: US)
  Receive Date: 20230209
  Receipt Date: 20230215
  Transmission Date: 20230418
  Serious: No
  Sender: FDA-Public Use
  Company Number: US-MYLANLABS-2022M1114633

PATIENT
  Sex: Male
  Weight: 78.02 kg

DRUGS (2)
  1. GLATIRAMER ACETATE [Suspect]
     Active Substance: GLATIRAMER ACETATE
     Indication: Multiple sclerosis
     Dosage: 40 MILLIGRAM, 3XW
     Route: 058
  2. GLATIRAMER ACETATE [Suspect]
     Active Substance: GLATIRAMER ACETATE
     Dosage: 40 MILLIGRAM, 3XW
     Route: 058
     Dates: start: 202209

REACTIONS (10)
  - Feeling abnormal [Unknown]
  - Fear of injection [Unknown]
  - Fatigue [Unknown]
  - Injection site pain [Unknown]
  - Pain in extremity [Unknown]
  - Back pain [Unknown]
  - Injection site urticaria [Unknown]
  - Injection site pruritus [Unknown]
  - Injection site atrophy [Unknown]
  - Wrong technique in product usage process [Unknown]
